FAERS Safety Report 7452464-7 (Version None)
Quarter: 2011Q2

REPORT INFORMATION
  Report Type: 
  Country: None (occurrence: None)
  Receive Date: 20110502
  Receipt Date: 20100929
  Transmission Date: 20111010
  Serious: No
  Sender: FDA-Public Use
  Company Number: US-ASTRAZENECA-2010SE45977

PATIENT
  Age: 68 Year
  Sex: Female
  Weight: 45.4 kg

DRUGS (3)
  1. LISINOPRIL [Concomitant]
  2. NEXIUM [Suspect]
     Indication: GASTROOESOPHAGEAL REFLUX DISEASE
     Route: 048
     Dates: start: 20100201
  3. VITAMIN TAB [Concomitant]

REACTIONS (5)
  - DRY SKIN [None]
  - HAIR TEXTURE ABNORMAL [None]
  - ABDOMINAL DISTENSION [None]
  - DRY MOUTH [None]
  - DRY EYE [None]
